FAERS Safety Report 16570420 (Version 2)
Quarter: 2019Q4

REPORT INFORMATION
  Report Type: Spontaneous
  Country: US (occurrence: US)
  Receive Date: 20190715
  Receipt Date: 20191018
  Transmission Date: 20200122
  Serious: Yes (Life-Threatening, Hospitalization, Other)
  Sender: FDA-Public Use
  Company Number: US-ACCORD-138423

PATIENT
  Age: 57 Year
  Sex: Male

DRUGS (2)
  1. CALCIUM CHLORIDE ANHYDROUS [Suspect]
     Active Substance: CALCIUM CHLORIDE ANHYDROUS
     Dosage: 20 GRAMS IN DEXTROSE 5%
  2. AMLODIPINE [Suspect]
     Active Substance: AMLODIPINE BESYLATE
     Dosage: INGESTED 30 TABLETS
     Route: 048

REACTIONS (4)
  - Intentional overdose [Unknown]
  - Suicidal ideation [Unknown]
  - Electrocardiogram QT prolonged [Recovered/Resolved]
  - Pancreatitis acute [Recovered/Resolved]
